FAERS Safety Report 13915357 (Version 9)
Quarter: 2023Q1

REPORT INFORMATION
  Report Type: Spontaneous
  Country: CA (occurrence: CA)
  Receive Date: 20170829
  Receipt Date: 20230103
  Transmission Date: 20230418
  Serious: Yes (Death, Life-Threatening, Hospitalization, Other)
  Sender: FDA-Public Use
  Company Number: CA-AUROBINDO-AUR-APL-2017-39428

PATIENT
  Age: 18 Year
  Sex: Female
  Weight: 63 kg

DRUGS (12)
  1. QUETIAPINE FUMARATE [Suspect]
     Active Substance: QUETIAPINE FUMARATE
     Indication: Product used for unknown indication
     Dosage: 20 DOSAGE FORM, IN TOTAL, APPROX 20 PILLS
     Route: 048
  2. QUETIAPINE FUMARATE [Suspect]
     Active Substance: QUETIAPINE FUMARATE
     Dosage: 25 MILLIGRAM, ONCE A DAY
     Route: 048
  3. QUETIAPINE FUMARATE [Suspect]
     Active Substance: QUETIAPINE FUMARATE
     Dosage: 40 DOSAGE FORM, IN TOTAL
     Route: 048
  4. CITALOPRAM [Suspect]
     Active Substance: CITALOPRAM HYDROBROMIDE
     Indication: Product used for unknown indication
     Dosage: 20 MILLIGRAM, ONCE A DAY
     Route: 065
  5. ACETAMINOPHEN [Suspect]
     Active Substance: ACETAMINOPHEN
     Indication: Product used for unknown indication
     Dosage: 40 DOSAGE FORM,1 TOTAL, (APPROXIMATELY 40 PILLS OF UNSPECIFIED STRENGTH)
     Route: 048
  6. ACETAMINOPHEN\CAFFEINE [Suspect]
     Active Substance: ACETAMINOPHEN\CAFFEINE
     Indication: Product used for unknown indication
     Dosage: 40 DOSAGE FORM, IN TOTAL
     Route: 048
  7. ASPIRIN [Suspect]
     Active Substance: ASPIRIN
     Indication: Product used for unknown indication
     Dosage: 15 DOSAGE FORM, 1 TOTAL, (APPROXIMATELY 15 PILLS OF UNSPECIFIED STRENGTH ; IN TOTAL)
     Route: 048
  8. DIPHENHYDRAMINE [Suspect]
     Active Substance: DIPHENHYDRAMINE
     Indication: Product used for unknown indication
     Dosage: UNK
     Route: 065
  9. PROPOFOL [Suspect]
     Active Substance: PROPOFOL
     Indication: Product used for unknown indication
     Dosage: UNK
     Route: 065
  10. ALCOHOL [Suspect]
     Active Substance: ALCOHOL
     Indication: Product used for unknown indication
     Dosage: UNK
     Route: 048
  11. ATOMOXETINE [Concomitant]
     Active Substance: ATOMOXETINE
     Indication: Product used for unknown indication
     Dosage: 60 MG, ONCE A DAY
     Route: 065
  12. ISONIAZID [Suspect]
     Active Substance: ISONIAZID
     Indication: Product used for unknown indication
     Dosage: 300 MILLIGRAM, ONCE A DAY
     Route: 065

REACTIONS (36)
  - Atrial fibrillation [Fatal]
  - Myocarditis [Fatal]
  - Overdose [Fatal]
  - Toxicity to various agents [Fatal]
  - Cardiac failure [Fatal]
  - Cardiac arrest [Fatal]
  - Completed suicide [Fatal]
  - Encephalopathy [Fatal]
  - Liver injury [Fatal]
  - Hepatic failure [Fatal]
  - Myalgia [Fatal]
  - Renal tubular necrosis [Fatal]
  - Suicide attempt [Fatal]
  - Hepatic encephalopathy [Fatal]
  - Tachycardia [Fatal]
  - Intentional overdose [Fatal]
  - Pleural effusion [Fatal]
  - Pericardial effusion [Fatal]
  - Hepatitis [Fatal]
  - Multiple organ dysfunction syndrome [Fatal]
  - Effusion [Fatal]
  - Gastrointestinal disorder [Fatal]
  - Pulmonary congestion [Fatal]
  - Pulmonary oedema [Fatal]
  - Electrocardiogram ST segment elevation [Fatal]
  - Congestive hepatopathy [Fatal]
  - Nausea [Fatal]
  - Seizure [Fatal]
  - Agitation [Fatal]
  - Oedema peripheral [Fatal]
  - Face oedema [Fatal]
  - Oxygen saturation decreased [Fatal]
  - Treatment noncompliance [Fatal]
  - Anaemia [Unknown]
  - Eosinopenia [Unknown]
  - Neutrophilia [Recovered/Resolved]
